FAERS Safety Report 7784153-3 (Version None)
Quarter: 2011Q3

REPORT INFORMATION
  Report Type: 
  Country: None (occurrence: None)
  Receive Date: 20110928
  Receipt Date: 20110927
  Transmission Date: 20111222
  Serious: Yes (Hospitalization)
  Sender: FDA-Public Use
  Company Number: JP-BAYER-2011-081096

PATIENT
  Age: 84 Year
  Sex: Male
  Weight: 60 kg

DRUGS (12)
  1. METFORMIN HCL [Suspect]
     Indication: DIABETES MELLITUS
     Dosage: UNK
     Route: 048
     Dates: start: 20110816, end: 20110819
  2. METFORMIN HCL [Suspect]
     Dosage: UNK
     Route: 048
     Dates: start: 20080101, end: 20110801
  3. PENMALIN [Concomitant]
     Dosage: DAILY DOSE 6 G
     Route: 042
     Dates: start: 20110815, end: 20110817
  4. BASEN [Suspect]
     Indication: DIABETES MELLITUS
     Dosage: UNK
     Route: 048
     Dates: start: 20110816, end: 20110819
  5. METFORMIN HCL [Suspect]
     Dosage: UNK
     Route: 048
     Dates: start: 20110823
  6. PICILLIBACTA/ SULBACTAM SODIUM_AMPICILLIN SODIUM [Concomitant]
     Dosage: DAILY DOSE 3 G
     Route: 042
     Dates: start: 20110811, end: 20110815
  7. AVELOX [Suspect]
     Indication: PNEUMONIA ASPIRATION
     Dosage: 400 MG, QD
     Route: 048
     Dates: start: 20110817, end: 20110819
  8. BASEN [Suspect]
     Dosage: UNK
     Route: 048
     Dates: start: 20110823
  9. AMARYL [Suspect]
     Indication: DIABETES MELLITUS
     Dosage: UNK
     Route: 048
     Dates: start: 20110816, end: 20110819
  10. AVELOX [Suspect]
     Indication: LUNG INFECTION PSEUDOMONAL
  11. BASEN [Suspect]
     Dosage: UNK
     Route: 048
     Dates: start: 20080101, end: 20110801
  12. AMARYL [Suspect]
     Dosage: UNK
     Route: 048
     Dates: start: 20080101, end: 20110801

REACTIONS (1)
  - HYPOGLYCAEMIA [None]
